FAERS Safety Report 21785950 (Version 1)
Quarter: 2022Q4

REPORT INFORMATION
  Report Type: Spontaneous
  Country: GB (occurrence: GB)
  Receive Date: 20221228
  Receipt Date: 20221228
  Transmission Date: 20230113
  Serious: Yes (Hospitalization)
  Sender: FDA-Public Use
  Company Number: GB-RP-024333

PATIENT
  Age: 47 Year
  Sex: Male

DRUGS (8)
  1. PREGABALIN [Suspect]
     Active Substance: PREGABALIN
     Indication: Product used for unknown indication
  2. CODEINE [Suspect]
     Active Substance: CODEINE
     Indication: Product used for unknown indication
  3. DIAMORPHINE [Suspect]
     Active Substance: DIAMORPHINE
     Indication: Product used for unknown indication
  4. METHADONE [Suspect]
     Active Substance: METHADONE HYDROCHLORIDE
     Indication: Product used for unknown indication
  5. MORPHINE [Suspect]
     Active Substance: MORPHINE
     Indication: Product used for unknown indication
  6. 4F-MDMB-BINACA [Suspect]
     Active Substance: 4F-MDMB-BINACA
     Indication: Product used for unknown indication
  7. ADB-HEXINACA [Suspect]
     Active Substance: ADB-HEXINACA
     Indication: Product used for unknown indication
  8. MDMB-4EN-PINACA [Suspect]
     Active Substance: MDMB-4EN-PINACA
     Indication: Product used for unknown indication

REACTIONS (7)
  - Coma scale abnormal [Unknown]
  - Blood bicarbonate increased [Unknown]
  - Toxicity to various agents [Unknown]
  - Behaviour disorder [Unknown]
  - PCO2 increased [Unknown]
  - Depressed level of consciousness [Unknown]
  - Intentional product misuse [Unknown]
